FAERS Safety Report 10125721 (Version 1)
Quarter: 2014Q2

REPORT INFORMATION
  Report Type: Spontaneous
  Country: IT (occurrence: IT)
  Receive Date: 20140425
  Receipt Date: 20140425
  Transmission Date: 20141212
  Serious: Yes (Other)
  Sender: FDA-Public Use
  Company Number: IT-UCBSA-8025731

PATIENT
  Age: 77 Year
  Sex: Female

DRUGS (7)
  1. KEPPRA [Suspect]
     Route: 048
     Dates: end: 20070421
  2. KEPPRA [Suspect]
     Dosage: DOSE FREQ.: DAILY
     Route: 048
     Dates: start: 20070422, end: 20070430
  3. KEPPRA [Suspect]
     Route: 048
     Dates: start: 20070601
  4. RATACAND [Concomitant]
     Route: 048
  5. LIMPIDEX [Concomitant]
  6. GARDENALE [Concomitant]
  7. EXELON [Concomitant]
     Dosage: DOSE FREQ.: DAILY
     Route: 048

REACTIONS (2)
  - Leukopenia [Recovering/Resolving]
  - Thrombocytopenia [Recovering/Resolving]
